FAERS Safety Report 15623337 (Version 2)
Quarter: 2020Q3

REPORT INFORMATION
  Report Type: Spontaneous
  Country: US (occurrence: US)
  Receive Date: 20181115
  Receipt Date: 20200918
  Transmission Date: 20201102
  Serious: Yes (Hospitalization)
  Sender: FDA-Public Use
  Company Number: US-PFIZER INC-2018467500

PATIENT
  Age: 63 Year
  Sex: Female

DRUGS (1)
  1. SERTRALINE HCL [Suspect]
     Active Substance: SERTRALINE HYDROCHLORIDE
     Indication: MAJOR DEPRESSION
     Dosage: 100 MG, 1X/DAY
     Dates: start: 2007

REACTIONS (6)
  - Speech disorder [Recovered/Resolved]
  - Drug ineffective [Unknown]
  - Illness [Unknown]
  - Headache [Recovered/Resolved]
  - Crying [Not Recovered/Not Resolved]
  - Nausea [Recovered/Resolved]
